FAERS Safety Report 15654445 (Version 1)
Quarter: 2018Q4

REPORT INFORMATION
  Report Type: Spontaneous
  Country: CH (occurrence: CH)
  Receive Date: 20181126
  Receipt Date: 20181126
  Transmission Date: 20190205
  Serious: Yes (Other)
  Sender: FDA-Public Use
  Company Number: CH-ROCHE-2219511

PATIENT
  Age: 56 Year
  Sex: Female

DRUGS (8)
  1. MEFENACID [Concomitant]
     Active Substance: MEFENAMIC ACID
     Route: 065
  2. DAFALGAN [Concomitant]
     Active Substance: ACETAMINOPHEN
     Route: 065
  3. MABTHERA [Suspect]
     Active Substance: RITUXIMAB
     Dosage: IN TOTAL
     Route: 065
     Dates: start: 201712, end: 201803
  4. EUTHYROX [Concomitant]
     Active Substance: LEVOTHYROXINE SODIUM
     Route: 065
  5. PLAQUENIL [Concomitant]
     Active Substance: HYDROXYCHLOROQUINE SULFATE
     Route: 065
     Dates: end: 2017
  6. MABTHERA [Suspect]
     Active Substance: RITUXIMAB
     Indication: PRODUCT USED FOR UNKNOWN INDICATION
     Dosage: TIME INTERVAL: 0.75 A
     Route: 065
     Dates: start: 20160412
  7. MABTHERA [Suspect]
     Active Substance: RITUXIMAB
     Dosage: IN TOTAL
     Route: 065
     Dates: start: 201803, end: 201803
  8. METHOTREXATE. [Concomitant]
     Active Substance: METHOTREXATE
     Route: 048
     Dates: start: 2002

REACTIONS (1)
  - Facial paralysis [Recovered/Resolved with Sequelae]

NARRATIVE: CASE EVENT DATE: 201701
